FAERS Safety Report 9499801 (Version 2)
Quarter: 2013Q4

REPORT INFORMATION
  Report Type: Spontaneous
  Country: GB (occurrence: GB)
  Receive Date: 20130905
  Receipt Date: 20131004
  Transmission Date: 20140711
  Serious: Yes (Other)
  Sender: FDA-Public Use
  Company Number: GB-JNJFOC-20130816249

PATIENT
  Age: 51 Year
  Sex: Male
  Weight: 123.1 kg

DRUGS (1)
  1. STELARA [Suspect]
     Indication: PSORIASIS
     Route: 058
     Dates: start: 20120910

REACTIONS (3)
  - Malignant melanoma [Not Recovered/Not Resolved]
  - Hypertension [Not Recovered/Not Resolved]
  - Drug ineffective [Recovered/Resolved]
